FAERS Safety Report 20299903 (Version 1)
Quarter: 2022Q1

REPORT INFORMATION
  Report Type: Spontaneous
  Country: US (occurrence: US)
  Receive Date: 20220105
  Receipt Date: 20220105
  Transmission Date: 20220424
  Serious: Yes (Other)
  Sender: FDA-Public Use
  Company Number: US-BRISTOL-MYERS SQUIBB COMPANY-BMS-2021-143624

PATIENT
  Age: 67 Year
  Sex: Female

DRUGS (1)
  1. TRIAMCINOLONE ACETONIDE [Suspect]
     Active Substance: TRIAMCINOLONE ACETONIDE
     Indication: Nasal neoplasm
     Dosage: ONCE WITH INTRALESIONAL CORTICOSTEROIDS (0.1 ML AT 2MG/ML CONCENTRATION)
     Route: 026

REACTIONS (2)
  - Mycobacterial infection [Recovering/Resolving]
  - Intentional product use issue [Unknown]
